FAERS Safety Report 20987114 (Version 1)
Quarter: 2022Q2

REPORT INFORMATION
  Report Type: Report from Study
  Country: US (occurrence: None)
  Receive Date: 20220621
  Receipt Date: 20220621
  Transmission Date: 20220720
  Serious: Yes (Hospitalization)
  Sender: FDA-Public Use
  Company Number: US-Eisai Medical Research-EC-2021-090479

PATIENT
  Age: 79 Year
  Sex: Male
  Weight: 72.4 kg

DRUGS (3)
  1. LENVATINIB [Suspect]
     Active Substance: LENVATINIB
     Indication: Thyroid cancer
     Route: 048
     Dates: start: 20190820, end: 20210111
  2. LENVATINIB [Suspect]
     Active Substance: LENVATINIB
     Route: 048
     Dates: start: 20210118
  3. PEMBROLIZUMAB [Suspect]
     Active Substance: PEMBROLIZUMAB
     Indication: Thyroid cancer
     Route: 041
     Dates: start: 20190820

REACTIONS (2)
  - Asthenia [Not Recovered/Not Resolved]
  - Stridor [Not Recovered/Not Resolved]

NARRATIVE: CASE EVENT DATE: 20210116
